FAERS Safety Report 6122214-5 (Version None)
Quarter: 2009Q1

REPORT INFORMATION
  Report Type: 
  Country: None (occurrence: None)
  Receive Date: 20090316
  Receipt Date: 20090305
  Transmission Date: 20090719
  Serious: Yes (Other)
  Sender: FDA-Public Use
  Company Number: GXKR2009JP02851

PATIENT
  Age: 69 Year
  Sex: Female
  Weight: 58 kg

DRUGS (2)
  1. RIBAVIRIN [Suspect]
     Indication: HEPATITIS C
     Dosage: 600 MG
     Dates: start: 20061001
  2. PEG-INTRON [Suspect]
     Indication: HEPATITIS C
     Dosage: 80 MG, QW
     Dates: start: 20061001

REACTIONS (2)
  - AUTOIMMUNE THROMBOCYTOPENIA [None]
  - MEGAKARYOCYTES INCREASED [None]
